FAERS Safety Report 5039474-4 (Version None)
Quarter: 2006Q2

REPORT INFORMATION
  Report Type: 
  Country: None (occurrence: None)
  Receive Date: 20060629
  Receipt Date: 20060619
  Transmission Date: 20061013
  Serious: Yes (Other)
  Sender: FDA-Public Use
  Company Number: DE-BRISTOL-MYERS SQUIBB COMPANY-13415716

PATIENT
  Age: 43 Year
  Sex: Male
  Weight: 79 kg

DRUGS (5)
  1. ETOPOSIDE [Suspect]
     Indication: SEMINOMA
     Route: 042
     Dates: start: 20060413, end: 20060417
  2. CISPLATIN [Suspect]
     Indication: SEMINOMA
     Route: 042
     Dates: start: 20060413, end: 20060417
  3. BLEOMYCIN [Suspect]
     Indication: SEMINOMA
     Dates: start: 20060413, end: 20060417
  4. ALLOPURINOL [Concomitant]
     Route: 048
     Dates: start: 20040301
  5. NEXIUM [Concomitant]
     Route: 048
     Dates: start: 20040301

REACTIONS (1)
  - PRINZMETAL ANGINA [None]
